FAERS Safety Report 14475105 (Version 1)
Quarter: 2018Q1

REPORT INFORMATION
  Report Type: Spontaneous
  Country: US (occurrence: US)
  Receive Date: 20180131
  Receipt Date: 20180131
  Transmission Date: 20180509
  Serious: Yes (Hospitalization)
  Sender: FDA-Public Use
  Company Number: None

PATIENT
  Age: 80 Year
  Sex: Female

DRUGS (11)
  1. TYLENOL [Concomitant]
     Active Substance: ACETAMINOPHEN
  2. BONIVA [Concomitant]
     Active Substance: IBANDRONATE SODIUM
  3. ADCIRCA [Suspect]
     Active Substance: TADALAFIL
     Indication: PULMONARY ARTERIAL HYPERTENSION
     Route: 048
  4. FUROSEMIDE. [Concomitant]
     Active Substance: FUROSEMIDE
  5. PRILOSEC [Concomitant]
     Active Substance: OMEPRAZOLE MAGNESIUM
  6. XARELTO [Concomitant]
     Active Substance: RIVAROXABAN
  7. SPIRONOLACT [Concomitant]
     Active Substance: SPIRONOLACTONE
  8. TRACLEER [Concomitant]
     Active Substance: BOSENTAN
  9. LEXAPRO [Concomitant]
     Active Substance: ESCITALOPRAM OXALATE
  10. TRAMADOL. [Concomitant]
     Active Substance: TRAMADOL
  11. BREOELLIPTICA [Concomitant]

REACTIONS (1)
  - Road traffic accident [None]

NARRATIVE: CASE EVENT DATE: 20171217
